FAERS Safety Report 25113454 (Version 1)
Quarter: 2025Q1

REPORT INFORMATION
  Report Type: Spontaneous
  Country: US (occurrence: None)
  Receive Date: 20250322
  Receipt Date: 20250322
  Transmission Date: 20250409
  Serious: Yes (Other)
  Sender: FDA-CTU
  Company Number: None

PATIENT
  Age: 73 Year
  Sex: Female
  Weight: 49.5 kg

DRUGS (14)
  1. GABAPENTIN [Suspect]
     Active Substance: GABAPENTIN
     Indication: Back pain
     Dates: start: 20250320, end: 20250321
  2. RYTARY [Concomitant]
     Active Substance: CARBIDOPA\LEVODOPA
  3. AMANTADINE [Concomitant]
     Active Substance: AMANTADINE
  4. RASAGILINE [Concomitant]
     Active Substance: RASAGILINE
  5. FLUDROCORTISONE [Concomitant]
     Active Substance: FLUDROCORTISONE
  6. FAMOTIDINE [Concomitant]
     Active Substance: FAMOTIDINE
  7. ACETAMINOPHEN [Concomitant]
     Active Substance: ACETAMINOPHEN
  8. VITAMINS [Concomitant]
     Active Substance: VITAMINS
  9. CALCIUM\VITAMIN D [Concomitant]
     Active Substance: CALCIUM\VITAMIN D
  10. CRANBERRY [Concomitant]
     Active Substance: CRANBERRY
  11. TOCOPHEROL [Concomitant]
     Active Substance: TOCOPHEROL
  12. D [Concomitant]
  13. COENZYME Q10 [Concomitant]
     Active Substance: DIETARY SUPPLEMENT\UBIDECARENONE
  14. FISH OIL [Concomitant]
     Active Substance: FISH OIL

REACTIONS (2)
  - Gait disturbance [None]
  - Somnolence [None]

NARRATIVE: CASE EVENT DATE: 20250321
